FAERS Safety Report 8273612-5 (Version None)
Quarter: 2012Q2

REPORT INFORMATION
  Report Type: 
  Country: None (occurrence: None)
  Receive Date: 20120411
  Receipt Date: 20120405
  Transmission Date: 20120825
  Serious: Yes (Hospitalization)
  Sender: FDA-Public Use
  Company Number: IT-BRISTOL-MYERS SQUIBB COMPANY-16451957

PATIENT
  Age: 57 Year
  Sex: Male
  Weight: 94 kg

DRUGS (14)
  1. RAMIPRIL [Concomitant]
     Dates: start: 20100101
  2. KEPPRA [Concomitant]
     Dates: start: 20100101
  3. FOLIC ACID [Concomitant]
     Dates: start: 20111019
  4. RABEPRAZOLE SODIUM [Concomitant]
     Dates: start: 20111105
  5. MYCOSTATIN [Concomitant]
     Dates: start: 20111215
  6. CISPLATIN [Suspect]
     Indication: NON-SMALL CELL LUNG CANCER
     Dosage: LAST DOSE: 15-FEB-2012
     Route: 042
     Dates: start: 20111214
  7. ESKIM [Concomitant]
     Dates: start: 20100101
  8. ACETYLSALICYLIC ACID SRT [Concomitant]
     Dates: start: 20100101
  9. ATORVASTATIN CALCIUM [Concomitant]
     Dates: start: 20100101
  10. VITAMIN B-12 [Concomitant]
     Dates: start: 20111017
  11. DEXAMETHASONE [Concomitant]
     Dates: end: 20120216
  12. WARFARIN SODIUM [Concomitant]
     Dates: start: 20100101
  13. PEMETREXED DISODIUM [Suspect]
     Indication: NON-SMALL CELL LUNG CANCER
     Dosage: LAST DOSE: 15-FEB-2012 INTP:7MAR12,RESTARTS:16MAR12 DOSE REDUCED ON 14MAR2012
     Route: 042
     Dates: start: 20111214
  14. ARIXTRA [Concomitant]
     Dates: start: 20111212

REACTIONS (8)
  - VERTIGO [None]
  - BLOOD CREATININE INCREASED [None]
  - DIZZINESS [None]
  - PYREXIA [None]
  - FATIGUE [None]
  - EPISTAXIS [None]
  - HYPOTENSION [None]
  - VESTIBULAR DISORDER [None]
